FAERS Safety Report 9216248 (Version 1)
Quarter: 2013Q2

REPORT INFORMATION
  Report Type: Report from Study
  Country: KR (occurrence: KR)
  Receive Date: 20130408
  Receipt Date: 20130408
  Transmission Date: 20140414
  Serious: Yes (Other)
  Sender: FDA-Public Use
  Company Number: KR-NAPPMUNDI-GBR-2013-0013586

PATIENT
  Sex: Male

DRUGS (5)
  1. OXYCODONE [Suspect]
     Indication: CANCER PAIN
     Dosage: UNK
     Route: 048
     Dates: start: 20110529
  2. CODEINE CO [Concomitant]
     Dosage: UNK
     Dates: start: 20110527
  3. TRAMADOL HYDROCHLORIDE [Concomitant]
     Dosage: UNK
     Dates: start: 20110423
  4. DUPHALAC                           /00163401/ [Concomitant]
     Dosage: UNK
     Dates: start: 20110423
  5. QUETIAPINE FUMARATE [Concomitant]

REACTIONS (4)
  - Delirium [Unknown]
  - Somnolence [Unknown]
  - Dry mouth [Unknown]
  - Pruritus [Unknown]
